FAERS Safety Report 25059038 (Version 1)
Quarter: 2025Q1

REPORT INFORMATION
  Report Type: Report from Study
  Country: CN (occurrence: CN)
  Receive Date: 20250310
  Receipt Date: 20250310
  Transmission Date: 20250409
  Serious: Yes (Other)
  Sender: GILEAD
  Company Number: CN-GILEAD-2025-0706362

PATIENT
  Age: 68 Year
  Sex: Female

DRUGS (1)
  1. SACITUZUMAB GOVITECAN-HZIY [Suspect]
     Active Substance: SACITUZUMAB GOVITECAN-HZIY
     Indication: Invasive ductal breast carcinoma
     Dosage: 360 MG, Q3WK
     Route: 041
     Dates: start: 20250220

REACTIONS (4)
  - Metastases to pleura [Unknown]
  - Metastases to lymph nodes [Unknown]
  - Hypokalaemia [Unknown]
  - Hypoproteinaemia [Unknown]
